FAERS Safety Report 6469684-0 (Version None)
Quarter: 2009Q4

REPORT INFORMATION
  Report Type: 
  Country: None (occurrence: None)
  Receive Date: 20091203
  Receipt Date: 20071109
  Transmission Date: 20100525
  Serious: Yes (Disabling)
  Sender: FDA-Public Use
  Company Number: FR-ELI_LILLY_AND_COMPANY-FR200711002204

PATIENT
  Sex: Male

DRUGS (5)
  1. ALIMTA [Suspect]
     Indication: NON-SMALL CELL LUNG CANCER
     Dosage: UNK, UNKNOWN
     Route: 042
     Dates: start: 20060209, end: 20070131
  2. ZOMETA [Concomitant]
     Dosage: UNK, UNKNOWN
     Route: 065
     Dates: start: 20050127, end: 20050428
  3. ZOMETA [Concomitant]
     Dosage: UNK, UNKNOWN
     Route: 065
     Dates: start: 20050503, end: 20060315
  4. CLASTOBAN [Concomitant]
     Indication: METASTASES TO BONE
     Dosage: UNK, UNKNOWN
     Route: 048
     Dates: start: 20050428, end: 20050503
  5. TAXOTERE [Concomitant]
     Indication: NON-SMALL CELL LUNG CANCER
     Dosage: UNK, UNKNOWN
     Route: 065
     Dates: start: 20050103, end: 20050419

REACTIONS (1)
  - OSTEONECROSIS [None]
